FAERS Safety Report 15674365 (Version 1)
Quarter: 2018Q4

REPORT INFORMATION
  Report Type: Spontaneous
  Country: ZA (occurrence: ZA)
  Receive Date: 20181130
  Receipt Date: 20181130
  Transmission Date: 20190205
  Serious: No
  Sender: FDA-Public Use
  Company Number: ZA-LUPIN PHARMACEUTICALS INC.-2018-00518

PATIENT
  Age: 59 Year
  Sex: Female

DRUGS (4)
  1. ZARTAN TABLETS [Suspect]
     Active Substance: LOSARTAN POTASSIUM
     Indication: HYPERTENSION
     Dosage: 50 MG, UNK
     Route: 048
     Dates: start: 201709, end: 201712
  2. ZYTOMIL [Concomitant]
     Active Substance: ESCITALOPRAM OXALATE
     Indication: ANTIDEPRESSANT THERAPY
     Dosage: 20 MG, UNK
     Route: 048
  3. ZOLPIHEXAL [Concomitant]
     Active Substance: ZOLPIDEM TARTRATE
     Indication: SLEEP DISORDER
     Dosage: 10 MG, UNK
     Route: 048
  4. HALCION [Concomitant]
     Active Substance: TRIAZOLAM
     Indication: SLEEP DISORDER
     Dosage: 0.25 MG, UNK
     Route: 048

REACTIONS (2)
  - Oropharyngeal pain [Recovered/Resolved]
  - Drug ineffective [Unknown]

NARRATIVE: CASE EVENT DATE: 201709
